FAERS Safety Report 6805865-1 (Version None)
Quarter: 2010Q2

REPORT INFORMATION
  Report Type: 
  Country: None (occurrence: None)
  Receive Date: 20100629
  Receipt Date: 20071102
  Transmission Date: 20101027
  Serious: Yes (Hospitalization, Other)
  Sender: FDA-Public Use
  Company Number: US-PFIZER INC-2007091640

PATIENT
  Sex: Male
  Weight: 122 kg

DRUGS (4)
  1. VIAGRA [Suspect]
     Indication: ERECTILE DYSFUNCTION
     Route: 048
  2. METOPROLOL [Concomitant]
  3. GLUCOPHAGE [Concomitant]
  4. ALL OTHER THERAPEUTIC PRODUCTS [Concomitant]

REACTIONS (3)
  - DEAFNESS UNILATERAL [None]
  - DRUG INEFFECTIVE [None]
  - SUDDEN HEARING LOSS [None]
